FAERS Safety Report 23961847 (Version 2)
Quarter: 2024Q2

REPORT INFORMATION
  Report Type: Spontaneous
  Country: DE (occurrence: DE)
  Receive Date: 20240611
  Receipt Date: 20240625
  Transmission Date: 20240716
  Serious: Yes (Hospitalization, Other)
  Sender: FDA-Public Use
  Company Number: DE-SA-2024SA172253

PATIENT
  Age: 76 Year
  Sex: Male

DRUGS (4)
  1. ELOCTA [Suspect]
     Active Substance: EFMOROCTOCOG ALFA
     Indication: Factor VIII deficiency
     Dosage: 2000 IU, QD
     Route: 065
     Dates: start: 20240604, end: 202406
  2. ELOCTA [Suspect]
     Active Substance: EFMOROCTOCOG ALFA
     Indication: Factor VIII deficiency
     Dosage: 2000 IU, QD
     Route: 065
     Dates: start: 20240604, end: 202406
  3. ELOCTA [Suspect]
     Active Substance: EFMOROCTOCOG ALFA
     Dosage: 3000 IU, QD
     Route: 065
  4. ELOCTA [Suspect]
     Active Substance: EFMOROCTOCOG ALFA
     Dosage: 3000 IU, QD
     Route: 065

REACTIONS (8)
  - Large intestine polyp [Unknown]
  - Unresponsive to stimuli [Unknown]
  - Syncope [Unknown]
  - Pallor [Unknown]
  - Dyspnoea [Unknown]
  - Cyanosis [Unknown]
  - Chest pain [Unknown]
  - Inappropriate schedule of product administration [Unknown]

NARRATIVE: CASE EVENT DATE: 20240601
